FAERS Safety Report 16058153 (Version 3)
Quarter: 2019Q2

REPORT INFORMATION
  Report Type: Spontaneous
  Country: US (occurrence: US)
  Receive Date: 20190311
  Receipt Date: 20190404
  Transmission Date: 20190711
  Serious: No
  Sender: FDA-Public Use
  Company Number: US-009507513-1903USA003893

PATIENT
  Age: 36 Year
  Sex: Female
  Weight: 54.42 kg

DRUGS (1)
  1. GANIRELIX ACETATE INJECTION [Suspect]
     Active Substance: GANIRELIX ACETATE
     Dosage: STRENGTH 250/0.5, INJECT INTO ABDOMEN
     Route: 058
     Dates: start: 20190306

REACTIONS (3)
  - Abdominal pain [Unknown]
  - Wrong technique in product usage process [Unknown]
  - Needle issue [Unknown]

NARRATIVE: CASE EVENT DATE: 20190306
